FAERS Safety Report 20901181 (Version 1)
Quarter: 2022Q2

REPORT INFORMATION
  Report Type: Spontaneous
  Country: US (occurrence: None)
  Receive Date: 20220601
  Receipt Date: 20220601
  Transmission Date: 20220721
  Serious: Yes (Hospitalization)
  Sender: FDA-Public Use
  Company Number: None

PATIENT
  Age: 37 Year
  Sex: Male

DRUGS (1)
  1. BIKTARVY [Suspect]
     Active Substance: BICTEGRAVIR SODIUM\EMTRICITABINE\TENOFOVIR ALAFENAMIDE FUMARATE
     Dosage: 50/200/25MG DAILY ORAL?
     Route: 048
     Dates: start: 202205

REACTIONS (7)
  - Pneumonia [None]
  - Dizziness [None]
  - Nausea [None]
  - Vomiting [None]
  - Rash [None]
  - Dyspepsia [None]
  - Abdominal pain [None]

NARRATIVE: CASE EVENT DATE: 20220515
